FAERS Safety Report 8766514 (Version 1)
Quarter: 2012Q4

REPORT INFORMATION
  Report Type: 
  Country: GB (occurrence: GB)
  Receive Date: 20120905
  Receipt Date: 20120905
  Transmission Date: 20130627
  Serious: Yes (Disabling)
  Sender: FDA-Public Use
  Company Number: GB-TEVA-356059ISR

PATIENT
  Age: 51 Year
  Sex: Female

DRUGS (5)
  1. CLOMIPRAMINE [Suspect]
     Indication: DEPRESSION
     Route: 048
     Dates: start: 201112, end: 20120809
  2. MIRTAZAPINE [Concomitant]
     Indication: DEPRESSION
     Route: 048
     Dates: end: 201112
  3. LAMOTRIGINE [Concomitant]
     Indication: MOOD ALTERED
     Dosage: Ongoing use.  Indication = mood stabiliser
     Route: 048
  4. OLANZAPINE [Concomitant]
     Indication: MOOD ALTERED
     Dosage: Ongoing use.  Indication = mood stabiliser
     Route: 048
  5. LANSOPRAZOLE [Concomitant]
     Route: 048

REACTIONS (3)
  - Stevens-Johnson syndrome [Not Recovered/Not Resolved]
  - Blood blister [Not Recovered/Not Resolved]
  - Oral mucosal blistering [Not Recovered/Not Resolved]
